FAERS Safety Report 12339023 (Version 1)
Quarter: 2016Q2

REPORT INFORMATION
  Report Type: Not Available
  Country: PK (occurrence: PK)
  Receive Date: 20160505
  Receipt Date: 20160505
  Transmission Date: 20160815
  Serious: Yes (Other)
  Sender: FDA-Public Use
  Company Number: PK-ANIPHARMA-2016-PK-000001

PATIENT
  Sex: Male

DRUGS (2)
  1. VANCOMYCIN HYDROCHLORIDE (NON-SPECIFIC) [Suspect]
     Active Substance: VANCOMYCIN HYDROCHLORIDE
     Dosage: UNKNOWN
  2. PIPERACILLIN AND TAZOBACTAM [Concomitant]
     Active Substance: PIPERACILLIN SODIUM\TAZOBACTAM SODIUM
     Dosage: 1900 MG EVERY 6 HOURS

REACTIONS (2)
  - Drug reaction with eosinophilia and systemic symptoms [Unknown]
  - Red man syndrome [Recovered/Resolved]
